FAERS Safety Report 26062499 (Version 1)
Quarter: 2025Q4

REPORT INFORMATION
  Report Type: Spontaneous
  Country: EU (occurrence: EU)
  Receive Date: 20251119
  Receipt Date: 20251119
  Transmission Date: 20260117
  Serious: Yes (Disabling)
  Sender: AMGEN
  Company Number: None

PATIENT
  Age: 46 Year
  Sex: Female

DRUGS (6)
  1. AIMOVIG [Suspect]
     Active Substance: ERENUMAB-AOOE
     Indication: Migraine prophylaxis
     Dosage: 140 MG, Q4W
     Route: 058
     Dates: start: 20250521, end: 20250612
  2. EUTHYROX [Concomitant]
     Active Substance: LEVOTHYROXINE SODIUM
     Indication: Hypothyroidism
     Dosage: 50 UG, QD
     Route: 065
     Dates: start: 20200417
  3. RIZATRIPTAN [Concomitant]
     Active Substance: RIZATRIPTAN
     Indication: Migraine
     Dosage: 10 MG, 1 TABLET AS NECESSARY, MAX 2 (INTERVAL UNKNOWN)
     Route: 065
     Dates: start: 20220514
  4. ATACAND [Concomitant]
     Active Substance: CANDESARTAN CILEXETIL
     Indication: Migraine
     Dosage: 8 MG, QD
     Route: 065
     Dates: start: 20230520, end: 20250612
  5. ESTRADIOL [Concomitant]
     Active Substance: ESTRADIOL
     Indication: Hormone therapy
     Dosage: 1 DF AS NECESSARY 3 DAYS BEFORE PERIOD OR OVULATION, ~1.53 MG/DOSE
     Route: 065
     Dates: start: 202410, end: 20250724
  6. OXAZEPAM [Concomitant]
     Active Substance: OXAZEPAM
     Indication: Sedative therapy
     Dosage: 15 MG (MAX ONE TABLET DAILY.)
     Route: 065
     Dates: start: 20250226

REACTIONS (14)
  - Migraine [Unknown]
  - Fatigue [Unknown]
  - Weight decreased [Unknown]
  - Nausea [Recovered/Resolved]
  - Decreased appetite [Recovering/Resolving]
  - Constipation [Unknown]
  - Akathisia [Unknown]
  - Anxiety [Unknown]
  - Apathy [Unknown]
  - Asthenia [Unknown]
  - Disturbance in attention [Unknown]
  - Headache [Unknown]
  - Skin disorder [Unknown]
  - Alopecia [Unknown]

NARRATIVE: CASE EVENT DATE: 20250501
